FAERS Safety Report 12133688 (Version 1)
Quarter: 2016Q1

REPORT INFORMATION
  Report Type: Spontaneous
  Country: US (occurrence: US)
  Receive Date: 20160301
  Receipt Date: 20160301
  Transmission Date: 20160526
  Serious: No
  Sender: FDA-Public Use
  Company Number: US-PFIZER INC-2016067689

PATIENT
  Age: 65 Year
  Sex: Female

DRUGS (1)
  1. ZOLOFT [Suspect]
     Active Substance: SERTRALINE HYDROCHLORIDE
     Dosage: 25 MG, UNK

REACTIONS (5)
  - Hypokinesia [Unknown]
  - Headache [Unknown]
  - Diarrhoea [Unknown]
  - Lethargy [Unknown]
  - Insomnia [Unknown]
